FAERS Safety Report 9632060 (Version 1)
Quarter: 2013Q4

REPORT INFORMATION
  Report Type: Spontaneous
  Country: AU (occurrence: None)
  Receive Date: 20131016
  Receipt Date: 20131016
  Transmission Date: 20140711
  Serious: No
  Sender: FDA-Public Use
  Company Number: AU-2013-3328

PATIENT
  Sex: Female

DRUGS (3)
  1. VINORELBINE [Suspect]
     Indication: BREAST CANCER METASTATIC
     Dosage: ON DAYS 1 AND 8 OF THE FIRST CYCLE
     Route: 048
  2. CAPECITABINE [Suspect]
     Dosage: DAYS 1 TO 14, EVERY 21 DAYS
  3. TRASTUZUMAB [Suspect]
     Dosage: 4 MG/KG ON DAY 1 (LOADING DOSE) THEN 2 MG/KG WEEKLY, EVERY 21 DAYS
     Route: 042

REACTIONS (2)
  - Angina pectoris [None]
  - Ejection fraction decreased [None]
